FAERS Safety Report 6793095-1 (Version None)
Quarter: 2010Q2

REPORT INFORMATION
  Report Type: 
  Country: None (occurrence: None)
  Receive Date: 20100624
  Receipt Date: 20100401
  Transmission Date: 20101027
  Serious: Yes (Other)
  Sender: FDA-Public Use
  Company Number: US-MYLANLABS-2009S1005276

PATIENT
  Age: 37 Year
  Sex: Male
  Weight: 91.17 kg

DRUGS (8)
  1. CLOZAPINE [Suspect]
     Indication: SCHIZOPHRENIA, PARANOID TYPE
     Route: 048
     Dates: start: 20090305, end: 20090816
  2. PROLIXIN /00000602/ [Concomitant]
     Dosage: 10MG QAM; 20MG QHS
     Route: 048
  3. BENZATROPINE [Concomitant]
     Route: 048
  4. CLONAZEPAM [Concomitant]
     Route: 048
  5. ABILIFY [Concomitant]
  6. PREVACID [Concomitant]
  7. DEPAKOTE ER [Concomitant]
  8. CLONAZEPAM [Concomitant]
     Route: 048

REACTIONS (1)
  - GRANULOCYTOPENIA [None]
